FAERS Safety Report 8326875-1 (Version None)
Quarter: 2012Q2

REPORT INFORMATION
  Report Type: 
  Country: None (occurrence: None)
  Receive Date: 20120501
  Receipt Date: 20120416
  Transmission Date: 20120825
  Serious: Yes (Hospitalization, Other)
  Sender: FDA-Public Use
  Company Number: JP-WATSON-2012-04738

PATIENT
  Age: 51 Year
  Sex: Female
  Weight: 44 kg

DRUGS (5)
  1. PREDNISOLONE [Suspect]
     Indication: SYSTEMIC LUPUS ERYTHEMATOSUS
     Dosage: ALTERNATING DAILY SCHEDULE OF 20MG AND 25MG
     Route: 048
  2. METHYLPREDNISOLONE [Suspect]
     Dosage: 40 MG, DAILY
     Route: 048
  3. CYCLOPHOSPHAMIDE [Suspect]
     Indication: SYSTEMIC LUPUS ERYTHEMATOSUS
     Route: 042
  4. METHYLPREDNISOLONE [Suspect]
     Indication: SYSTEMIC LUPUS ERYTHEMATOSUS
     Dosage: 1 G, DAILY
     Route: 065
  5. PREDNISOLONE [Suspect]
     Dosage: 50 MG, DAILY
     Route: 048

REACTIONS (1)
  - PNEUMATOSIS INTESTINALIS [None]
